FAERS Safety Report 9053775 (Version 1)
Quarter: 2013Q1

REPORT INFORMATION
  Report Type: Spontaneous
  Country: US (occurrence: US)
  Receive Date: 20130207
  Receipt Date: 20130207
  Transmission Date: 20140127
  Serious: Yes (Other)
  Sender: FDA-Public Use
  Company Number: US-GLAXOSMITHKLINE-A0775496A

PATIENT
  Sex: Female

DRUGS (1)
  1. AVANDIA [Suspect]
     Indication: TYPE 2 DIABETES MELLITUS
     Dosage: 8MG PER DAY
     Route: 048
     Dates: start: 200005, end: 200205

REACTIONS (5)
  - Cardiac failure congestive [Not Recovered/Not Resolved]
  - Transplant [Unknown]
  - Hip surgery [Unknown]
  - Renal failure [Unknown]
  - Liver disorder [Unknown]
